FAERS Safety Report 5773731-9 (Version None)
Quarter: 2008Q2

REPORT INFORMATION
  Report Type: 
  Country: None (occurrence: None)
  Receive Date: 20080601
  Receipt Date: 20080305
  Transmission Date: 20081010
  Serious: No
  Sender: FDA-Public Use
  Company Number: US200803001293

PATIENT
  Age: 51 Year
  Sex: Female
  Weight: 87.1 kg

DRUGS (8)
  1. BYETTA [Suspect]
     Indication: TYPE 2 DIABETES MELLITUS
     Dosage: 5 UG, 2/D, SUBCUTANEOUS ; 10 UG, 2/D, SUBCUTANEOUS
     Route: 058
     Dates: start: 20080201, end: 20080301
  2. BYETTA [Suspect]
     Indication: TYPE 2 DIABETES MELLITUS
     Dosage: 5 UG, 2/D, SUBCUTANEOUS ; 10 UG, 2/D, SUBCUTANEOUS
     Route: 058
     Dates: start: 20080303
  3. DRUG USED IN DIABETES [Concomitant]
  4. METFORMIN HCL [Concomitant]
  5. CHROMIUM (CHROMIUM) [Concomitant]
  6. COENZYME Q10 [Concomitant]
  7. ASPIRIN CHILDREN (ACETYLSALICYLIC ACID) [Concomitant]
  8. ENALAPRIL MALEATE [Concomitant]

REACTIONS (3)
  - BLOOD GLUCOSE INCREASED [None]
  - INCORRECT DOSE ADMINISTERED [None]
  - NASOPHARYNGITIS [None]
